FAERS Safety Report 7494907-9 (Version None)
Quarter: 2011Q2

REPORT INFORMATION
  Report Type: 
  Country: None (occurrence: None)
  Receive Date: 20110520
  Receipt Date: 20110511
  Transmission Date: 20111010
  Serious: Yes (Hospitalization)
  Sender: FDA-Public Use
  Company Number: JP-ASTRAZENECA-2011SE19457

PATIENT
  Age: 74 Year
  Sex: Female
  Weight: 44 kg

DRUGS (8)
  1. LANSOPRAZOLE [Concomitant]
     Route: 048
     Dates: start: 20110327
  2. ALFAROL [Concomitant]
     Route: 048
     Dates: start: 20100811
  3. METHYCOBAL [Concomitant]
     Route: 048
     Dates: start: 20110329
  4. NEUROTROPIN [Concomitant]
     Route: 048
     Dates: start: 20110401
  5. ACTONEL [Concomitant]
     Route: 048
     Dates: start: 20100608
  6. ARIMIDEX [Suspect]
     Indication: BREAST CANCER
     Route: 048
     Dates: start: 20100907, end: 20110330
  7. MYONAL [Concomitant]
     Route: 048
     Dates: start: 20100715
  8. MUCOSTA [Concomitant]
     Dosage: DOSE UNKNOWN
     Route: 048
     Dates: start: 20100608, end: 20110403

REACTIONS (1)
  - NEUROPATHY PERIPHERAL [None]
